FAERS Safety Report 18215701 (Version 2)
Quarter: 2020Q3

REPORT INFORMATION
  Report Type: Report from Study
  Country: None (occurrence: US)
  Receive Date: 20200831
  Receipt Date: 20200927
  Transmission Date: 20201103
  Serious: Yes (Hospitalization, Other)
  Sender: FDA-Public Use
  Company Number: US-ABBVIE-20K-163-3542792-00

PATIENT
  Age: 65 Year
  Sex: Female

DRUGS (1)
  1. RINVOQ [Suspect]
     Active Substance: UPADACITINIB
     Indication: RHEUMATOID ARTHRITIS
     Route: 048

REACTIONS (11)
  - Myocardial infarction [Recovering/Resolving]
  - Incision site swelling [Unknown]
  - Hallucination [Unknown]
  - Delirium [Recovered/Resolved]
  - Stress [Unknown]
  - Back injury [Unknown]
  - Spinal operation [Unknown]
  - Memory impairment [Unknown]
  - Postoperative wound infection [Unknown]
  - Fluid retention [Unknown]
  - Back pain [Unknown]

NARRATIVE: CASE EVENT DATE: 202006
